FAERS Safety Report 12661361 (Version 2)
Quarter: 2016Q3

REPORT INFORMATION
  Report Type: Spontaneous
  Country: US (occurrence: US)
  Receive Date: 20160817
  Receipt Date: 20160901
  Transmission Date: 20161109
  Serious: No
  Sender: FDA-Public Use
  Company Number: US-RELYPSA-RLY2016000943

PATIENT
  Sex: Male

DRUGS (15)
  1. BENZTROPINE MESYLATE. [Concomitant]
     Active Substance: BENZTROPINE MESYLATE
  2. CARVEDILOL. [Concomitant]
     Active Substance: CARVEDILOL
  3. HYDRALAZINE HCL [Concomitant]
     Active Substance: HYDRALAZINE HYDROCHLORIDE
  4. OLANZAPINE. [Concomitant]
     Active Substance: OLANZAPINE
  5. MYCOPHENOLATE MOFETIL. [Concomitant]
     Active Substance: MYCOPHENOLATE MOFETIL
  6. PANTOPRAZOLE SODIUM. [Concomitant]
     Active Substance: PANTOPRAZOLE SODIUM
  7. VALGANCICLOVIR HCL [Concomitant]
  8. ASPIRIN 81 [Concomitant]
     Active Substance: ASPIRIN
  9. VELTASSA [Suspect]
     Active Substance: PATIROMER
     Indication: HYPERKALAEMIA
     Dosage: 8.4 G,QD
     Route: 048
     Dates: start: 20160524
  10. LANTUS [Concomitant]
     Active Substance: INSULIN GLARGINE
  11. NIFEDIPINE. [Concomitant]
     Active Substance: NIFEDIPINE
  12. PREDNISONE. [Concomitant]
     Active Substance: PREDNISONE
  13. PROGRAF [Concomitant]
     Active Substance: TACROLIMUS\TACROLIMUS ANHYDROUS
  14. ATORVASTATIN CALCIUM. [Concomitant]
     Active Substance: ATORVASTATIN CALCIUM
  15. ENTECAVIR. [Concomitant]
     Active Substance: ENTECAVIR

REACTIONS (1)
  - Diarrhoea [Unknown]

NARRATIVE: CASE EVENT DATE: 2016
